FAERS Safety Report 14017309 (Version 2)
Quarter: 2018Q1

REPORT INFORMATION
  Report Type: Spontaneous
  Country: IT (occurrence: IT)
  Receive Date: 20170927
  Receipt Date: 20180122
  Transmission Date: 20180508
  Serious: Yes (Hospitalization, Other)
  Sender: FDA-Public Use
  Company Number: IT-GLAXOSMITHKLINE-IT2017GSK147042

PATIENT
  Age: 52 Year
  Sex: Male

DRUGS (6)
  1. DICLOFENAC SODIUM. [Suspect]
     Active Substance: DICLOFENAC SODIUM
     Indication: INFLAMMATION
     Dosage: 200 MG, SINGLE
     Route: 048
     Dates: start: 20170917, end: 20170917
  2. ALCOHOL. [Interacting]
     Active Substance: ALCOHOL
     Indication: PRODUCT USED FOR UNKNOWN INDICATION
     Dosage: UNK
  3. TICLOPIDINE HYDROCHLORIDE. [Concomitant]
     Active Substance: TICLOPIDINE HYDROCHLORIDE
     Indication: PRODUCT USED FOR UNKNOWN INDICATION
     Dosage: UNK
     Dates: start: 20170917
  4. BLOPRESID [Concomitant]
     Active Substance: CANDESARTAN CILEXETIL\HYDROCHLOROTHIAZIDE
     Indication: PRODUCT USED FOR UNKNOWN INDICATION
     Dosage: UNK
     Dates: start: 20170917
  5. QUETIAPINE. [Interacting]
     Active Substance: QUETIAPINE
     Indication: PSYCHOTIC DISORDER
     Dosage: 100 MG, SINGLE
     Route: 048
     Dates: start: 20170917, end: 20170917
  6. GABAPENTIN. [Interacting]
     Active Substance: GABAPENTIN
     Indication: EPILEPSY
     Dosage: 100 MG, SINGLE
     Route: 048
     Dates: start: 20170917, end: 20170917

REACTIONS (4)
  - Slow speech [Unknown]
  - Drug abuse [Unknown]
  - Alcohol interaction [Unknown]
  - Intentional self-injury [Unknown]

NARRATIVE: CASE EVENT DATE: 20170917
